FAERS Safety Report 4849915-0 (Version None)
Quarter: 2005Q4

REPORT INFORMATION
  Report Type: 
  Country: None (occurrence: None)
  Receive Date: 20051209
  Receipt Date: 20051116
  Transmission Date: 20060501
  Serious: No
  Sender: FDA-Public Use
  Company Number: DE-MERCK-0511DEU00108

PATIENT
  Age: 74 Year
  Sex: Female

DRUGS (12)
  1. FOSAMAX [Suspect]
     Indication: OSTEOPOROSIS
     Route: 048
     Dates: start: 20010101
  2. FOSAMAX [Suspect]
     Route: 048
     Dates: end: 20020101
  3. PREDNISOLONE [Concomitant]
     Route: 048
  4. AZATHIOPRINE [Concomitant]
     Route: 048
  5. HYDROXYCHLOROQUINE SULFATE [Concomitant]
     Route: 048
  6. ASPIRIN [Concomitant]
     Route: 048
  7. OMEPRAZOLE [Concomitant]
     Route: 048
  8. THEOPHYLLINE [Concomitant]
     Route: 048
  9. SALMETEROL XINAFOATE [Concomitant]
     Route: 055
  10. CHOLECALCIFEROL [Concomitant]
     Route: 048
  11. CETIRIZINE HYDROCHLORIDE [Concomitant]
     Route: 048
  12. ESTRADIOL AND NORETHINDRONE ACETATE [Concomitant]
     Route: 048

REACTIONS (2)
  - BLOOD CREATINE PHOSPHOKINASE INCREASED [None]
  - MYALGIA [None]
